FAERS Safety Report 8949181 (Version 1)
Quarter: 2012Q4

REPORT INFORMATION
  Report Type: 
  Country: US (occurrence: US)
  Receive Date: 20121206
  Receipt Date: 20121206
  Transmission Date: 20130627
  Serious: Yes (Hospitalization)
  Sender: FDA-Public Use
  Company Number: US-NOVOPROD-365561

PATIENT
  Age: 47 Year
  Sex: Female
  Weight: 79.37 kg

DRUGS (4)
  1. VICTOZA [Suspect]
     Indication: TYPE 2 DIABETES MELLITUS
     Dosage: 0.6 mg, qd
     Route: 058
     Dates: start: 201210, end: 201210
  2. METFORMIN [Concomitant]
     Indication: TYPE 2 DIABETES MELLITUS
     Dosage: 500 mg, bid
     Route: 048
  3. LABETALOL [Concomitant]
     Indication: HYPERTENSION
     Dosage: 100 mg, bid
     Route: 048
  4. RAMIPRIL [Concomitant]
     Indication: HYPERTENSION
     Dosage: 10 mg, qd
     Route: 048

REACTIONS (2)
  - Hypertension [Recovered/Resolved]
  - Nausea [Recovered/Resolved]
